FAERS Safety Report 26105560 (Version 1)
Quarter: 2025Q4

REPORT INFORMATION
  Report Type: Spontaneous
  Country: US (occurrence: US)
  Receive Date: 20251201
  Receipt Date: 20251201
  Transmission Date: 20260118
  Serious: Yes (Life-Threatening)
  Sender: BAXTER
  Company Number: US-BAXTER-2025BAX024871

PATIENT
  Age: 72 Year
  Sex: Female
  Weight: 95 kg

DRUGS (1)
  1. NOREPINEPHRINE BITARTRATE [Suspect]
     Active Substance: NOREPINEPHRINE BITARTRATE
     Dosage: INFUSION VIA PUMP
     Route: 065

REACTIONS (3)
  - Adverse event [Unknown]
  - Device infusion issue [Unknown]
  - Incorrect dose administered by device [Unknown]

NARRATIVE: CASE EVENT DATE: 20251024
